FAERS Safety Report 26063992 (Version 1)
Quarter: 2025Q4

REPORT INFORMATION
  Report Type: Spontaneous
  Country: US (occurrence: US)
  Receive Date: 20251119
  Receipt Date: 20251119
  Transmission Date: 20260118
  Serious: Yes (Other)
  Sender: BAYER HEALTHCARE PHARMACEUTICALS INC.
  Company Number: US-BAYER-2025A149280

PATIENT
  Age: 69 Year
  Sex: Female
  Weight: 68.481 kg

DRUGS (1)
  1. KERENDIA [Suspect]
     Active Substance: FINERENONE
     Dosage: 10 MG

REACTIONS (3)
  - Glomerular filtration rate decreased [Recovering/Resolving]
  - Hepatitis B [None]
  - Weight increased [Recovering/Resolving]

NARRATIVE: CASE EVENT DATE: 20251001
